FAERS Safety Report 9325430 (Version 1)
Quarter: 2013Q2

REPORT INFORMATION
  Report Type: Spontaneous
  Country: US (occurrence: None)
  Receive Date: 20130531
  Receipt Date: 20130531
  Transmission Date: 20140414
  Serious: Yes (Hospitalization)
  Sender: FDA-Public Use
  Company Number: None

PATIENT
  Age: 67 Year
  Sex: Male
  Weight: 50.9 kg

DRUGS (1)
  1. CISPLATIN [Suspect]
     Indication: HEAD AND NECK CANCER
     Dosage: OTHER
     Route: 042
     Dates: start: 20130305, end: 20130319

REACTIONS (10)
  - Asthenia [None]
  - Nausea [None]
  - Vomiting [None]
  - Constipation [None]
  - Hypophagia [None]
  - Anaemia macrocytic [None]
  - Electrolyte imbalance [None]
  - Dehydration [None]
  - Leukocytosis [None]
  - Thrombocytopenia [None]
